FAERS Safety Report 9096655 (Version 1)
Quarter: 2013Q1

REPORT INFORMATION
  Report Type: Spontaneous
  Country: BE (occurrence: BE)
  Receive Date: 20130211
  Receipt Date: 20130211
  Transmission Date: 20140127
  Serious: Yes (Hospitalization)
  Sender: FDA-Public Use
  Company Number: PHHY2013BE011976

PATIENT
  Age: 74 Year
  Sex: Female

DRUGS (3)
  1. EXJADE [Suspect]
     Indication: MYELODYSPLASTIC SYNDROME
     Dosage: UNK, DAILY
     Route: 048
     Dates: start: 2011, end: 2011
  2. EXJADE [Suspect]
     Dosage: UNK
     Route: 048
     Dates: start: 201201, end: 201202
  3. ELTHYRONE [Concomitant]
     Indication: HYPOTHYROIDISM
     Dosage: UNK UKN, UNK

REACTIONS (3)
  - Pericarditis [Recovered/Resolved]
  - Pneumonia [Recovered/Resolved]
  - Diarrhoea [Recovered/Resolved]
